FAERS Safety Report 10132595 (Version 1)
Quarter: 2014Q2

REPORT INFORMATION
  Report Type: Spontaneous
  Country: US (occurrence: US)
  Receive Date: 20140428
  Receipt Date: 20140428
  Transmission Date: 20141212
  Serious: No
  Sender: FDA-Public Use
  Company Number: US-MALLINCKRODT-T201304447

PATIENT
  Age: 35 Year
  Sex: Male
  Weight: 108.84 kg

DRUGS (3)
  1. HYDROCODONE/ACETAMINOPHEN [Suspect]
     Indication: ARTHRALGIA
     Dosage: 5/325 MG, ONE TABLET, BID
     Route: 048
     Dates: start: 20130909
  2. VICODIN [Concomitant]
     Indication: ARTHRALGIA
     Dosage: UNK
     Dates: start: 201309, end: 20130909
  3. TRAMADOL [Concomitant]
     Indication: ARTHRALGIA
     Dosage: UNK
     Dates: start: 201309, end: 20130909

REACTIONS (2)
  - Medication residue present [Unknown]
  - Drug ineffective [Not Recovered/Not Resolved]
